FAERS Safety Report 9809588 (Version 2)
Quarter: 2014Q1

REPORT INFORMATION
  Report Type: Spontaneous
  Country: US (occurrence: US)
  Receive Date: 20140110
  Receipt Date: 20140110
  Transmission Date: 20141002
  Serious: Yes (Other)
  Sender: FDA-Public Use
  Company Number: US-SANOFI-AVENTIS-2012SA036692

PATIENT
  Age: 76 Year
  Sex: Male
  Weight: 98.5 kg

DRUGS (21)
  1. CLOPIDOGREL BISULFATE [Suspect]
     Indication: ACUTE CORONARY SYNDROME
     Route: 048
     Dates: start: 20120430, end: 20120430
  2. CLOPIDOGREL BISULFATE [Suspect]
     Indication: ACUTE CORONARY SYNDROME
     Route: 048
     Dates: start: 20120501
  3. ASPIRIN [Suspect]
     Indication: ACUTE CORONARY SYNDROME
     Route: 048
     Dates: start: 20120403
  4. ASPIRIN [Suspect]
     Indication: ACUTE CORONARY SYNDROME
     Route: 048
     Dates: start: 20120429, end: 20120429
  5. ASPIRIN [Suspect]
     Indication: ACUTE CORONARY SYNDROME
     Route: 048
     Dates: start: 20120430, end: 20120430
  6. ASPIRIN [Suspect]
     Indication: ACUTE CORONARY SYNDROME
     Route: 048
     Dates: start: 20120501, end: 20120502
  7. ASPIRIN [Suspect]
     Indication: ACUTE CORONARY SYNDROME
     Route: 048
     Dates: start: 20120430, end: 20120430
  8. OTAMIXABAN [Suspect]
     Indication: ACUTE CORONARY SYNDROME
     Route: 042
     Dates: start: 20120430, end: 20120430
  9. HEPARIN [Concomitant]
     Dosage: DOSE:5000 UNIT(S)
     Route: 040
     Dates: start: 20120429, end: 20120429
  10. HEPARIN [Concomitant]
     Dosage: DOSE:13 UNIT(S)/KILOGRAM BODYWEIGHT
     Route: 041
     Dates: start: 20120429, end: 20120430
  11. HEPARIN [Concomitant]
     Dosage: DOSE:4000 UNIT(S)
     Route: 040
     Dates: start: 20120430, end: 20120430
  12. HEPARIN [Concomitant]
     Dosage: DOSE:3000 UNIT(S)
     Route: 040
     Dates: start: 20120430, end: 20120430
  13. ACETYLCYSTEINE [Concomitant]
     Dates: start: 20120429, end: 20120501
  14. DOCUSATE SODIUM [Concomitant]
     Dates: start: 20120429, end: 20120502
  15. METOPROLOL [Concomitant]
     Dates: start: 20120429, end: 20120501
  16. MORPHINE [Concomitant]
     Dates: start: 20120429, end: 20120429
  17. NITROGLYCERIN ^SLOVAKOFARMA^ [Concomitant]
     Dates: start: 20120429, end: 20120502
  18. NITROGLYCERIN ^SLOVAKOFARMA^ [Concomitant]
     Dates: start: 20120430, end: 20120430
  19. PRAVASTATIN [Concomitant]
     Dates: start: 20120429
  20. HYDROMORPHONE [Concomitant]
     Dates: start: 20120429, end: 20120430
  21. OXYCODONE [Concomitant]
     Dates: start: 20120430, end: 20120430

REACTIONS (2)
  - Urethral haemorrhage [Recovered/Resolved]
  - Accidental overdose [Recovered/Resolved]
